FAERS Safety Report 9276334 (Version 1)
Quarter: 2013Q2

REPORT INFORMATION
  Report Type: Report from Study
  Country: US (occurrence: US)
  Receive Date: 20130507
  Receipt Date: 20130507
  Transmission Date: 20140414
  Serious: Yes (Hospitalization, Other)
  Sender: FDA-Public Use
  Company Number: US-ABBOTT-13P-163-1083731-00

PATIENT
  Age: 43 Year
  Sex: Female

DRUGS (12)
  1. HUMIRA [Suspect]
     Indication: CROHN^S DISEASE
     Dosage: 40 MG EVERY OTHER WEEK AFTER INITIAL DOSING
     Dates: start: 201211, end: 201301
  2. METHOTREXATE [Suspect]
     Indication: PRODUCT USED FOR UNKNOWN INDICATION
  3. ESTRADIOL [Concomitant]
     Indication: PRODUCT USED FOR UNKNOWN INDICATION
     Dosage: 2 PATCHES WEEKLY
  4. FLEXERIL [Concomitant]
     Indication: PAIN
  5. PROMETHAZINE [Concomitant]
     Indication: NAUSEA
  6. VALIUM [Concomitant]
     Indication: PRODUCT USED FOR UNKNOWN INDICATION
  7. DONNATAL [Concomitant]
     Indication: MUSCLE SPASMS
  8. VITAMIN B12 [Concomitant]
     Indication: PRODUCT USED FOR UNKNOWN INDICATION
  9. VITAMIN D [Concomitant]
     Indication: PRODUCT USED FOR UNKNOWN INDICATION
  10. VITAMIN C [Concomitant]
     Indication: PRODUCT USED FOR UNKNOWN INDICATION
  11. GLUCOSAMINE [Concomitant]
     Indication: PRODUCT USED FOR UNKNOWN INDICATION
  12. PREDNISONE [Concomitant]
     Indication: PRODUCT USED FOR UNKNOWN INDICATION
     Dosage: DAILY

REACTIONS (6)
  - Endometriosis [Unknown]
  - Abdominal pain [Recovering/Resolving]
  - Pelvic inflammatory disease [Unknown]
  - Appendicectomy [Unknown]
  - Urinary incontinence [Unknown]
  - Malaise [Unknown]
